FAERS Safety Report 24741263 (Version 2)
Quarter: 2024Q4

REPORT INFORMATION
  Report Type: Spontaneous
  Country: US (occurrence: US)
  Receive Date: 20241217
  Receipt Date: 20241230
  Transmission Date: 20250115
  Serious: No
  Sender: EMCURE PHARMACEUTICALS LTD
  Company Number: US-AVET LIFESCIENCES LTD-2024-AVET-000463

PATIENT

DRUGS (1)
  1. HYDRALAZINE HYDROCHLORIDE [Suspect]
     Active Substance: HYDRALAZINE HYDROCHLORIDE
     Indication: Hypertension
     Dosage: 10 MILLIGRAM, 3 DOSE PER 1 D, THREE TIMES DAILY FOR 7 TO 10 YEARS
     Route: 048

REACTIONS (5)
  - Ear pruritus [Unknown]
  - Throat tightness [Unknown]
  - Feeling hot [Unknown]
  - Nasal congestion [Unknown]
  - Anxiety [Unknown]

NARRATIVE: CASE EVENT DATE: 20241208
